FAERS Safety Report 5123371-X (Version None)
Quarter: 2006Q4

REPORT INFORMATION
  Report Type: 
  Country: None (occurrence: None)
  Receive Date: 20061005
  Receipt Date: 20060925
  Transmission Date: 20070319
  Serious: Yes (Other)
  Sender: FDA-Public Use
  Company Number: 2006117099

PATIENT
  Age: 42 Year
  Sex: Male

DRUGS (1)
  1. LISTERINE (MENTHOL, METHYL SALICYLATE, EUCALYPTOL, THYMOL) [Suspect]
     Indication: DENTAL DISORDER PROPHYLAXIS
     Dosage: LESS THAN 1/2 CAP 3 OR 4X DAILY, ORAL
     Route: 048
     Dates: start: 20060601

REACTIONS (6)
  - BLOOD PRESSURE INCREASED [None]
  - JOB DISSATISFACTION [None]
  - NAUSEA [None]
  - NERVOUSNESS [None]
  - REFUSAL OF TREATMENT BY PATIENT [None]
  - VISION BLURRED [None]
